FAERS Safety Report 5883688-8 (Version None)
Quarter: 2008Q3

REPORT INFORMATION
  Report Type: 
  Country: None (occurrence: None)
  Receive Date: 20080910
  Receipt Date: 20080825
  Transmission Date: 20090109
  Serious: Yes (Hospitalization)
  Sender: FDA-Public Use
  Company Number: 034#1#2008-00002

PATIENT
  Sex: Female

DRUGS (5)
  1. NEUPRO [Suspect]
     Indication: PARKINSON'S DISEASE
     Dosage: 2 MG/24H (2 MG/24H 1 IN 1 DAY(S) )
     Route: 062
     Dates: start: 20080301, end: 20080801
  2. PRAMIPEXOLE DIHYROCHLORIDE (PRAMIPEXOLE DIHYDROCHLORIDE) [Concomitant]
  3. DULOXETINE HYDROCHLORIDE [Concomitant]
  4. PERINDOPRIL ERBUMINE [Concomitant]
  5. MAGNESIUM, CALCIUM (CALCIUM, MAGNESIUM) [Concomitant]

REACTIONS (1)
  - PARALYSIS [None]
